FAERS Safety Report 8818104 (Version 1)
Quarter: 2012Q4

REPORT INFORMATION
  Report Type: 
  Country: US (occurrence: US)
  Receive Date: 20121001
  Receipt Date: 20121001
  Transmission Date: 20130627
  Serious: Yes (Other)
  Sender: FDA-Public Use
  Company Number: US-ASTRAZENECA-2012SE73572

PATIENT
  Age: 60 Year
  Sex: Female
  Weight: 90.7 kg

DRUGS (12)
  1. SEROQUEL [Suspect]
     Indication: DEPRESSION
     Route: 048
     Dates: start: 2009
  2. CRESTOR [Suspect]
     Indication: BLOOD CHOLESTEROL ABNORMAL
     Route: 048
     Dates: start: 2000
  3. AMBIEN [Concomitant]
     Indication: SLEEP DISORDER
  4. XANAX [Concomitant]
  5. CYMBALTA [Concomitant]
     Indication: MUSCLE DISORDER
  6. CYMBALTA [Concomitant]
     Indication: ARTHRITIS
  7. NEURONTIN [Concomitant]
     Indication: ARTHRITIS
  8. EST-ESTROGEN [Concomitant]
     Indication: HORMONE REPLACEMENT THERAPY
     Dosage: 0.0625/125 mg, daily
  9. MOBIC [Concomitant]
     Indication: ARTHRITIS
  10. TRAMADOL [Concomitant]
     Indication: PAIN
     Dosage: EVERY 4-6 HOURS
  11. TOVIAZ [Concomitant]
     Indication: URINARY INCONTINENCE
  12. VITAMIN D [Concomitant]

REACTIONS (5)
  - Blindness unilateral [Unknown]
  - Retinal detachment [Unknown]
  - Arthritis [Unknown]
  - Urinary incontinence [Unknown]
  - Off label use [Unknown]
